FAERS Safety Report 13094147 (Version 1)
Quarter: 2017Q1

REPORT INFORMATION
  Report Type: Spontaneous
  Country: US (occurrence: US)
  Receive Date: 20170106
  Receipt Date: 20170106
  Transmission Date: 20170428
  Serious: Yes (Death)
  Sender: FDA-Public Use
  Company Number: US-BAYER-2017-001680

PATIENT
  Age: 59 Year
  Sex: Male

DRUGS (6)
  1. GLIPIZIDE. [Suspect]
     Active Substance: GLIPIZIDE
  2. METFORMIN [Suspect]
     Active Substance: METFORMIN HYDROCHLORIDE
  3. ACETYLSALICYLIC ACID (} 100 MG) [Suspect]
     Active Substance: ASPIRIN
  4. ALCOHOL. [Suspect]
     Active Substance: ALCOHOL
  5. AMLODIPINE [Suspect]
     Active Substance: AMLODIPINE BESYLATE
  6. LISINOPRIL. [Suspect]
     Active Substance: LISINOPRIL

REACTIONS (1)
  - Toxicity to various agents [Fatal]
